FAERS Safety Report 7348159-0 (Version None)
Quarter: 2011Q1

REPORT INFORMATION
  Report Type: 
  Country: None (occurrence: None)
  Receive Date: 20110311
  Receipt Date: 20110304
  Transmission Date: 20110831
  Serious: Yes (Death, Other)
  Sender: FDA-Public Use
  Company Number: FR-CEPHALON-2011000549

PATIENT
  Sex: Female

DRUGS (4)
  1. ACTIQ [Suspect]
     Route: 002
     Dates: start: 20091109, end: 20110112
  2. DURAGESIC-100 [Concomitant]
     Dates: start: 20091109, end: 20110112
  3. MORPHINE [Concomitant]
  4. ACTIQ [Suspect]
     Indication: BREAKTHROUGH PAIN
     Route: 002
     Dates: start: 20091109, end: 20110112

REACTIONS (3)
  - RENAL CANCER [None]
  - AMNESIA [None]
  - DRUG PRESCRIBING ERROR [None]
